FAERS Safety Report 9619536 (Version 2)
Quarter: 2013Q4

REPORT INFORMATION
  Report Type: Spontaneous
  Country: DE (occurrence: DE)
  Receive Date: 20131014
  Receipt Date: 20131014
  Transmission Date: 20140711
  Serious: Yes (Other)
  Sender: FDA-Public Use
  Company Number: DE-ABBVIE-13P-062-1153298-00

PATIENT
  Sex: Male

DRUGS (1)
  1. MALIASIN [Suspect]
     Indication: EPILEPSY

REACTIONS (3)
  - Surgery [Unknown]
  - Post procedural haemorrhage [Not Recovered/Not Resolved]
  - Endotracheal intubation [Unknown]
